FAERS Safety Report 11894971 (Version 1)
Quarter: 2016Q1

REPORT INFORMATION
  Report Type: Spontaneous
  Country: AE (occurrence: None)
  Receive Date: 20160106
  Receipt Date: 20160106
  Transmission Date: 20160526
  Serious: Yes (Other)
  Sender: FDA-Public Use
  Company Number: None

PATIENT
  Age: 46 Year
  Sex: Male
  Weight: 90.72 kg

DRUGS (2)
  1. DAFLON [Suspect]
     Active Substance: DIOSMIN\HESPERIDIN
     Indication: TESTICULAR PAIN
     Dosage: 2
     Route: 048
     Dates: start: 20120110, end: 20120120
  2. TEA [Concomitant]
     Active Substance: TEA LEAF

REACTIONS (2)
  - Tinnitus [None]
  - Hyperacusis [None]

NARRATIVE: CASE EVENT DATE: 20120110
